FAERS Safety Report 5005070-8 (Version None)
Quarter: 2006Q2

REPORT INFORMATION
  Report Type: 
  Country: None (occurrence: None)
  Receive Date: 20060516
  Receipt Date: 20060516
  Transmission Date: 20061013
  Serious: Yes (Life-Threatening, Hospitalization)
  Sender: FDA-Public Use
  Company Number: None

PATIENT
  Sex: Female
  Weight: 51.7 kg

DRUGS (4)
  1. METHOTREXATE [Suspect]
     Indication: BONE SARCOMA
     Dates: start: 20050920
  2. SODIUM BICARBONATE [Suspect]
     Dosage: 50 MEQ
  3. DEXTROSE 5% [Suspect]
     Dosage: 4 HOURS X1
  4. ONDANSETRON HCL [Concomitant]

REACTIONS (11)
  - ALANINE AMINOTRANSFERASE INCREASED [None]
  - ASPARTATE AMINOTRANSFERASE INCREASED [None]
  - BLOOD BILIRUBIN INCREASED [None]
  - BLOOD CREATININE INCREASED [None]
  - BLOOD UREA INCREASED [None]
  - DRUG TOXICITY [None]
  - HEPATOTOXICITY [None]
  - HYPOTENSION [None]
  - INFUSION RELATED REACTION [None]
  - NEPHROPATHY TOXIC [None]
  - SYNCOPE [None]
